FAERS Safety Report 6268201-8 (Version None)
Quarter: 2009Q3

REPORT INFORMATION
  Report Type: 
  Country: None (occurrence: None)
  Receive Date: 20090714
  Receipt Date: 20090714
  Transmission Date: 20100115
  Serious: Yes (Hospitalization)
  Sender: FDA-Public Use
  Company Number: None

PATIENT
  Age: 85 Year
  Sex: Male

DRUGS (1)
  1. WARFARIN SODIUM [Suspect]
     Indication: AORTIC THROMBOSIS
     Dates: start: 20090101, end: 20090506

REACTIONS (16)
  - ABDOMINAL HERNIA [None]
  - ALCOHOL USE [None]
  - AORTIC OCCLUSION [None]
  - DECREASED APPETITE [None]
  - DYSPNOEA EXERTIONAL [None]
  - HAEMOPTYSIS [None]
  - HAEMORRHAGE [None]
  - HYPOPHAGIA [None]
  - INTERNATIONAL NORMALISED RATIO INCREASED [None]
  - LOWER RESPIRATORY TRACT INFECTION FUNGAL [None]
  - NEOPLASM [None]
  - PAIN [None]
  - RALES [None]
  - SCAR [None]
  - TUBERCULOSIS [None]
  - WEIGHT DECREASED [None]
